FAERS Safety Report 14641062 (Version 1)
Quarter: 2018Q1

REPORT INFORMATION
  Report Type: Spontaneous
  Country: US (occurrence: US)
  Receive Date: 20180315
  Receipt Date: 20180315
  Transmission Date: 20180509
  Serious: Yes (Other)
  Sender: FDA-Public Use
  Company Number: US-COVIS PHARMA B.V.-2018COV00168

PATIENT
  Sex: Male

DRUGS (1)
  1. SOTALOL. [Suspect]
     Active Substance: SOTALOL
     Dosage: UNK

REACTIONS (1)
  - Cardiac disorder [Unknown]
